FAERS Safety Report 8125231-9 (Version None)
Quarter: 2012Q1

REPORT INFORMATION
  Report Type: 
  Country: None (occurrence: None)
  Receive Date: 20120209
  Receipt Date: 20120207
  Transmission Date: 20120608
  Serious: Yes (Life-Threatening, Hospitalization)
  Sender: FDA-Public Use
  Company Number: DE-B.I. PHARMACEUTICALS,INC./RIDGEFIELD-2012-DE-00398DE

PATIENT
  Sex: Female
  Weight: 85 kg

DRUGS (10)
  1. PRADAXA [Suspect]
     Indication: CEREBROVASCULAR ACCIDENT
     Dosage: 220 MG
     Route: 048
     Dates: start: 20110916, end: 20120124
  2. ACTRAPHANE [Concomitant]
     Dosage: 50/50
  3. ALLOPURINOL [Concomitant]
     Dosage: 300 MG
  4. XIPAMID [Concomitant]
     Dosage: 10 MG
  5. PRAVASTATIN [Concomitant]
     Dosage: 40 MG
  6. PRADAXA [Suspect]
     Indication: EMBOLISM
  7. ACTRAPHANE [Concomitant]
     Dosage: 30/70
  8. CALCIUM D3 [Concomitant]
     Dosage: 4 ANZ
  9. SOTAHEXAL [Concomitant]
     Dosage: 53.333 MG
  10. HYDROCHLOROTHIAZIDE [Concomitant]
     Dosage: 25 MG

REACTIONS (3)
  - GASTRIC ULCER [None]
  - HELICOBACTER TEST POSITIVE [None]
  - GASTRIC HAEMORRHAGE [None]
